FAERS Safety Report 9004747 (Version 1)
Quarter: 2013Q1

REPORT INFORMATION
  Report Type: Spontaneous
  Country: US (occurrence: US)
  Receive Date: 20130109
  Receipt Date: 20130109
  Transmission Date: 20140127
  Serious: No
  Sender: FDA-Public Use
  Company Number: US-PFIZER INC-2013007446

PATIENT
  Sex: Female

DRUGS (3)
  1. LYRICA [Suspect]
     Indication: FIBROMYALGIA
     Dosage: UNKNOWN DOSE TWICE A DAY
  2. CYMBALTA [Suspect]
     Indication: FIBROMYALGIA
     Dosage: UNKNOWN DOSE IN PM
  3. SAVELLA [Suspect]
     Dosage: UNK

REACTIONS (4)
  - Pain [Unknown]
  - Headache [Unknown]
  - Malaise [Unknown]
  - Drug ineffective [Unknown]
